FAERS Safety Report 23174983 (Version 1)
Quarter: 2023Q4

REPORT INFORMATION
  Report Type: Spontaneous
  Country: US (occurrence: US)
  Receive Date: 20231112
  Receipt Date: 20231112
  Transmission Date: 20240110
  Serious: No
  Sender: FDA-Public Use
  Company Number: US-BRISTOL-MYERS SQUIBB COMPANY-2023-161311

PATIENT
  Age: 64 Year
  Sex: Female
  Weight: 67.13 kg

DRUGS (3)
  1. OPDIVO [Suspect]
     Active Substance: NIVOLUMAB
     Indication: Malignant melanoma
     Dosage: DOSE : 2;     FREQ : EVERY 21 DAYS X2 TREATMENTS
     Route: 042
     Dates: start: 20230823
  2. YERVOY [Suspect]
     Active Substance: IPILIMUMAB
     Indication: Malignant melanoma
     Route: 042
  3. ANTIHISTAMINES NOS [Concomitant]
     Active Substance: ANTIHISTAMINES NOS
     Indication: Product used for unknown indication
     Dosage: OTC

REACTIONS (5)
  - Thyroiditis [Unknown]
  - Dry eye [Unknown]
  - Vision blurred [Unknown]
  - Secretion discharge [Unknown]
  - Dry mouth [Unknown]

NARRATIVE: CASE EVENT DATE: 20230824
